FAERS Safety Report 4837034-9 (Version None)
Quarter: 2005Q4

REPORT INFORMATION
  Report Type: 
  Country: None (occurrence: None)
  Receive Date: 20051124
  Receipt Date: 20051101
  Transmission Date: 20060501
  Serious: Yes (Other)
  Sender: FDA-Public Use
  Company Number: PHNU2005DE03595

PATIENT
  Age: 56 Year
  Sex: Female
  Weight: 70 kg

DRUGS (2)
  1. FEMARA [Suspect]
     Indication: NEOPLASM MALIGNANT
     Dosage: 2.5 MG, QD
     Route: 048
     Dates: start: 20040528, end: 20050901
  2. PAMIDRONATE DISODIUM [Concomitant]
     Dosage: UNK, UNK

REACTIONS (7)
  - ANAEMIA HAEMOLYTIC AUTOIMMUNE [None]
  - BLOOD BILIRUBIN INCREASED [None]
  - BLOOD LACTATE DEHYDROGENASE INCREASED [None]
  - COOMBS TEST POSITIVE [None]
  - HAPTOGLOBIN DECREASED [None]
  - RETICULOCYTE PERCENTAGE INCREASED [None]
  - TUMOUR MARKER INCREASED [None]
